FAERS Safety Report 9034242 (Version 1)
Quarter: 2013Q1

REPORT INFORMATION
  Report Type: Spontaneous
  Country: US (occurrence: US)
  Receive Date: 20130128
  Receipt Date: 20130128
  Transmission Date: 20140127
  Serious: Yes (Other)
  Sender: FDA-Public Use
  Company Number: US-AMGEN-US083644

PATIENT
  Age: 77 Year
  Sex: Male

DRUGS (7)
  1. ENBREL [Suspect]
     Indication: RHEUMATOID ARTHRITIS
     Dosage: 25 MG, 2 TIMES/WK
     Route: 058
     Dates: start: 20000921, end: 20040211
  2. PREDNISONE [Concomitant]
     Dosage: UNK UNK, UNK
     Route: 042
     Dates: start: 1998
  3. LORSARTAN POTASSIUM HYDROCHLORIDE [Concomitant]
     Dosage: UNK UNK, UNK
     Dates: start: 1997
  4. CARVEDILOL [Concomitant]
     Dosage: UNK UNK, UNK
     Dates: start: 1997
  5. ROFECOXIB [Concomitant]
     Dosage: UNK UNK, UNK
     Dates: start: 1999
  6. RANITIDINE HYDROCHLORIDE [Concomitant]
     Dosage: UNK UNK, UNK
     Dates: start: 1999
  7. ALENDRONATE SODIUM [Concomitant]
     Dosage: UNK UNK, UNK
     Dates: start: 2001

REACTIONS (1)
  - Chronic inflammatory demyelinating polyradiculoneuropathy [Not Recovered/Not Resolved]
